FAERS Safety Report 5480326-3 (Version None)
Quarter: 2007Q4

REPORT INFORMATION
  Report Type: 
  Country: None (occurrence: None)
  Receive Date: 20071009
  Receipt Date: 20070927
  Transmission Date: 20080405
  Serious: Yes (Hospitalization)
  Sender: FDA-Public Use
  Company Number: JP-AMGEN-US246125

PATIENT
  Age: 70 Year
  Sex: Female

DRUGS (4)
  1. ENBREL [Suspect]
     Indication: RHEUMATOID ARTHRITIS
     Route: 058
     Dates: start: 20070831, end: 20070925
  2. PREDONINE [Concomitant]
     Route: 065
  3. FAMOTIDINE [Concomitant]
     Route: 065
  4. ISCOTIN [Concomitant]
     Route: 065

REACTIONS (1)
  - AGRANULOCYTOSIS [None]
